FAERS Safety Report 5487608-X (Version None)
Quarter: 2007Q4

REPORT INFORMATION
  Report Type: 
  Country: None (occurrence: None)
  Receive Date: 20071016
  Receipt Date: 20071008
  Transmission Date: 20080405
  Serious: Yes (Hospitalization)
  Sender: FDA-Public Use
  Company Number: US-ELI_LILLY_AND_COMPANY-US200707000679

PATIENT
  Sex: Female
  Weight: 63.492 kg

DRUGS (10)
  1. BYETTA [Suspect]
     Indication: TYPE 2 DIABETES MELLITUS
     Dosage: 5 UG, 2/D
     Route: 058
     Dates: start: 20060101
  2. BYETTA [Suspect]
     Dosage: 10 UG, 2/D
     Route: 058
     Dates: start: 20060601
  3. BYETTA [Suspect]
     Dosage: 10 UG, 2/D
     Route: 058
     Dates: start: 20070601
  4. METFORMIN HCL [Concomitant]
     Indication: TYPE 2 DIABETES MELLITUS
     Dosage: 500 MG, AS NEEDED
     Route: 048
  5. EFFEXOR XR [Concomitant]
     Dosage: 150 MG, UNKNOWN
     Route: 048
  6. SIMVASTATIN [Concomitant]
     Dosage: 40 MG, UNKNOWN
     Route: 048
  7. FEXOFENADINE HYDROCHLORIDE [Concomitant]
     Dosage: 180 MG, UNKNOWN
     Route: 048
  8. ATENOLOL [Concomitant]
     Dosage: 50 MG, UNKNOWN
     Route: 048
  9. FEMARA [Concomitant]
     Dosage: 2.5 MG, UNKNOWN
     Route: 048
  10. MELOXICAM [Concomitant]
     Dosage: 7.5 MG, UNKNOWN
     Route: 048

REACTIONS (2)
  - BLOOD GLUCOSE INCREASED [None]
  - OSTEOARTHRITIS [None]
